FAERS Safety Report 5463089-7 (Version None)
Quarter: 2007Q3

REPORT INFORMATION
  Report Type: 
  Country: None (occurrence: None)
  Receive Date: 20070920
  Receipt Date: 20070913
  Transmission Date: 20080115
  Serious: Yes (Life-Threatening, Hospitalization)
  Sender: FDA-Public Use
  Company Number: JP-AVENTIS-200712307JP

PATIENT
  Age: 63 Year
  Sex: Male
  Weight: 52 kg

DRUGS (10)
  1. ALLEGRA [Suspect]
     Indication: RASH
     Route: 048
     Dates: start: 20070822, end: 20070824
  2. RABEPRAZOLE SODIUM [Suspect]
     Dosage: DOSE: 1 TABLET
     Route: 048
     Dates: start: 20070723, end: 20070824
  3. ARTIST [Concomitant]
     Indication: ACUTE MYOCARDIAL INFARCTION
     Dosage: DOSE: 1 TABLET
     Route: 048
     Dates: start: 20070723, end: 20070824
  4. ASPENON [Concomitant]
     Indication: ACUTE MYOCARDIAL INFARCTION
     Dosage: DOSE: 1 CAPSULE
     Route: 048
     Dates: start: 20070723, end: 20070824
  5. PLETAL [Concomitant]
     Indication: ACUTE MYOCARDIAL INFARCTION
     Dosage: DOSE: 1 TABLET
     Route: 048
     Dates: start: 20070723, end: 20070824
  6. ASPIRIN [Concomitant]
     Indication: ACUTE MYOCARDIAL INFARCTION
     Dosage: DOSE: 1 TABLET
     Route: 048
     Dates: start: 20070723, end: 20070824
  7. CANDESARTAN CILEXETIL [Concomitant]
     Indication: HYPERTENSION
     Dosage: DOSE: 0.5 TABLET
     Route: 048
     Dates: start: 20070723, end: 20070824
  8. WARFARIN SODIUM [Concomitant]
     Indication: MYOCARDIAL INFARCTION
     Dosage: DOSE: 1 TABLET
     Route: 048
     Dates: start: 20070723, end: 20070824
  9. LIPITOR [Concomitant]
     Indication: HYPERLIPIDAEMIA
     Dosage: DOSE: 1 TABLET
     Route: 048
     Dates: start: 20070723, end: 20070824
  10. TOPSYM [Concomitant]
     Dates: start: 20070822

REACTIONS (1)
  - NEUTROPENIA [None]
